FAERS Safety Report 25709426 (Version 2)
Quarter: 2025Q4

REPORT INFORMATION
  Report Type: Spontaneous
  Country: US (occurrence: US)
  Receive Date: 20250821
  Receipt Date: 20251230
  Transmission Date: 20260117
  Serious: Yes (Other)
  Sender: CATALYST PHARMA
  Company Number: US-CATALYST PHARMACEUTICALS, INC-US-CATA-25-00031

PATIENT
  Age: 85 Year
  Sex: Male
  Weight: 81.633 kg

DRUGS (26)
  1. FIRDAPSE [Suspect]
     Active Substance: AMIFAMPRIDINE PHOSPHATE
     Indication: Myasthenic syndrome
     Dosage: 30 MG PER DAY (TITRATION, 10 MG BY 3 TIMES DAILY FOR 4 DAYS, THEN INCREASE BY 5 MGS EVERY 7 DAYS TO
     Route: 048
     Dates: start: 20231109, end: 2023
  2. FIRDAPSE [Suspect]
     Active Substance: AMIFAMPRIDINE PHOSPHATE
     Dosage: 55 MG TO 60 MG TOTAL DAILY IN DIVIDED DOSES
     Route: 048
     Dates: start: 20231213
  3. TYLENOL [Concomitant]
     Active Substance: ACETAMINOPHEN
     Indication: Pain
     Dosage: 500 MG AS NEEDED
     Route: 065
  4. DONEPEZIL [Concomitant]
     Active Substance: DONEPEZIL
     Indication: Amnesia
     Dosage: 10 MG ONE DAILY
     Route: 065
  5. LEXAPRO [Concomitant]
     Active Substance: ESCITALOPRAM OXALATE
     Indication: Depression
     Dosage: 10 MG ONE DAILY
     Route: 065
  6. ZETIA [Concomitant]
     Active Substance: EZETIMIBE
     Indication: Hypercholesterolaemia
     Dosage: 10 MG ONE DAILY
     Route: 065
  7. IMODIUM [Concomitant]
     Active Substance: LOPERAMIDE HYDROCHLORIDE
     Indication: Diarrhoea
     Dosage: 2 MG AS NEEDED
     Route: 065
  8. VITAMINS [Concomitant]
     Active Substance: VITAMINS
     Indication: Hypovitaminosis
     Dosage: 1 TABLET
     Route: 065
  9. PRIMIDONE [Concomitant]
     Active Substance: PRIMIDONE
     Indication: Tremor
     Dosage: 250 MG ONE DAILY
     Route: 065
  10. ROSUVASTATIN [Concomitant]
     Active Substance: ROSUVASTATIN
     Indication: Hypercholesterolaemia
     Dosage: 20 MG ONE DAILY
     Route: 065
  11. TAMSULOSIN [Concomitant]
     Active Substance: TAMSULOSIN
     Indication: Benign prostatic hyperplasia
     Dosage: 0.4 MG ONE DAILY
     Route: 065
  12. CARVEDILOL [Concomitant]
     Active Substance: CARVEDILOL
     Indication: Cardiovascular disorder
     Dosage: 3.125 MG TWICE A DAY
     Route: 065
  13. PEPPERMINT OIL [Concomitant]
     Active Substance: PEPPERMINT OIL
     Indication: Gastrointestinal disorder
     Dosage: ONE CAPSULE DAILY
     Route: 065
  14. PEPPERMINT OIL [Concomitant]
     Active Substance: PEPPERMINT OIL
     Indication: Prophylaxis
     Dosage: 90 MG
     Route: 065
  15. FUROSEMIDE [Concomitant]
     Active Substance: FUROSEMIDE
     Indication: Cardiovascular disorder
     Dosage: 20 MG ONE DAILY
     Route: 065
  16. ASPIRIN [Concomitant]
     Active Substance: ASPIRIN
     Indication: Thrombosis prophylaxis
     Dosage: 81 MG ONE DAILY
     Route: 065
  17. VITAMIN C [Concomitant]
     Active Substance: ASCORBIC ACID
     Indication: Hypovitaminosis
     Dosage: 500 MG EVERY OTHER DAILY
     Route: 065
  18. IRON [Concomitant]
     Active Substance: IRON
     Indication: Anaemia
     Dosage: 325 MG EVERY OTHER DAY
     Route: 065
  19. MUPIROCIN [Concomitant]
     Active Substance: MUPIROCIN
     Indication: Upper respiratory tract infection
     Dosage: 2 PERCENT
     Route: 065
  20. MEMANTINE [Concomitant]
     Active Substance: MEMANTINE
     Indication: Amnesia
     Dosage: 5 MG TWICE A DAY
     Route: 065
  21. MELATONIN [Concomitant]
     Active Substance: MELATONIN
     Indication: Insomnia
     Dosage: 5 MG AT BEDTIME
     Route: 065
  22. MELOXICAM [Concomitant]
     Active Substance: MELOXICAM
     Indication: Product used for unknown indication
     Dosage: 15 MG
     Route: 065
  23. AMOXICILLIN [Concomitant]
     Active Substance: AMOXICILLIN
     Indication: Prophylaxis
     Dosage: 500 MG
     Route: 065
  24. FREGAM M [Concomitant]
     Indication: Hypovitaminosis
     Dosage: ONE DAILY
     Route: 065
  25. GUARD [Concomitant]
     Active Substance: ALCOHOL
     Indication: Gastrointestinal disorder
     Dosage: 900 MG
     Route: 042
  26. GUARD [Concomitant]
     Active Substance: ALCOHOL
     Indication: Prophylaxis

REACTIONS (16)
  - Squamous cell carcinoma [Unknown]
  - Squamous cell carcinoma [Unknown]
  - Squamous cell carcinoma [Unknown]
  - Cardiac failure [Unknown]
  - Hypothyroidism [Unknown]
  - Fatigue [Unknown]
  - Balance disorder [Unknown]
  - Bone contusion [Unknown]
  - Gastrointestinal disorder [Not Recovered/Not Resolved]
  - Actinic keratosis [Unknown]
  - Oedema [Not Recovered/Not Resolved]
  - Dyspnoea [Not Recovered/Not Resolved]
  - Asthenia [Not Recovered/Not Resolved]
  - Fall [Not Recovered/Not Resolved]
  - Fall [Not Recovered/Not Resolved]
  - Hypertension [Unknown]

NARRATIVE: CASE EVENT DATE: 20250101
